FAERS Safety Report 8202763-6 (Version None)
Quarter: 2012Q1

REPORT INFORMATION
  Report Type: 
  Country: None (occurrence: None)
  Receive Date: 20120312
  Receipt Date: 20120312
  Transmission Date: 20120608
  Serious: No
  Sender: FDA-Public Use
  Company Number: None

PATIENT
  Age: 82 Year
  Sex: Female
  Weight: 47.173 kg

DRUGS (2)
  1. LEVOXYL [Suspect]
     Indication: HYPOTHYROIDISM
     Dosage: 0.075
     Route: 048
  2. LEVOXYL [Concomitant]
     Dosage: 0.075
     Route: 048

REACTIONS (25)
  - FATIGUE [None]
  - BODY TEMPERATURE DECREASED [None]
  - MIDDLE INSOMNIA [None]
  - CONSTIPATION [None]
  - HYPOGLYCAEMIA [None]
  - ANXIETY [None]
  - ABDOMINAL DISTENSION [None]
  - NIGHT SWEATS [None]
  - PHARYNGEAL DISORDER [None]
  - HYPOTHYROIDISM [None]
  - TEMPERATURE INTOLERANCE [None]
  - FRUSTRATION [None]
  - CONFUSIONAL STATE [None]
  - ARTHRALGIA [None]
  - TENDON DISORDER [None]
  - DIZZINESS [None]
  - HEART RATE DECREASED [None]
  - ALOPECIA [None]
  - ASTHENIA [None]
  - DYSPHONIA [None]
  - MYALGIA [None]
  - MUSCLE SPASMS [None]
  - SOMNOLENCE [None]
  - EYE PAIN [None]
  - TREMOR [None]
